FAERS Safety Report 22123675 (Version 1)
Quarter: 2023Q1

REPORT INFORMATION
  Report Type: Spontaneous
  Country: US (occurrence: US)
  Receive Date: 20230322
  Receipt Date: 20230322
  Transmission Date: 20230418
  Serious: Yes (Other)
  Sender: FDA-Public Use
  Company Number: US-STRIDES ARCOLAB LIMITED-2023SP003999

PATIENT
  Age: 48 Year
  Sex: Male

DRUGS (10)
  1. DOXORUBICIN [Suspect]
     Active Substance: DOXORUBICIN
     Indication: Plasmablastic lymphoma
     Dosage: 10 MILLIGRAM/SQ. METER (THERAPY COMPLETED) (RECEIVED DURING CYCLES 1-6)
     Route: 065
  2. METHOTREXATE [Suspect]
     Active Substance: METHOTREXATE
     Indication: Plasmablastic lymphoma
     Dosage: 12 MILLIGRAM (RECEIVED DURING CYCLE 1-6) (THERAPY COMPLETED)
     Route: 037
  3. METHOTREXATE [Suspect]
     Active Substance: METHOTREXATE
     Dosage: 6 MILLIGRAM/SQ. METER, (RECEIVED ON DAY 15 DURING CYCLE 1, 3 AND 5)
     Route: 065
  4. ETOPOSIDE [Suspect]
     Active Substance: ETOPOSIDE
     Indication: Plasmablastic lymphoma
     Dosage: 37.5 MILLIGRAM/SQ. METER, CYCLICAL (RECEIVED DURING CYCLE 1-2) (THERAPY COMPLETED)
     Route: 065
  5. ETOPOSIDE [Suspect]
     Active Substance: ETOPOSIDE
     Dosage: 50 MILLIGRAM/SQ. METER, (CYCLE 2)(RECEIVED DURING CYCLE 3-6)
     Route: 065
  6. CYCLOPHOSPHAMIDE [Suspect]
     Active Substance: CYCLOPHOSPHAMIDE
     Indication: Plasmablastic lymphoma
     Dosage: 187.5 MILLIGRAM/SQ. METER (RECEIVED DURING CYCLE 1-6) ( THERAPY COMPLETED.)
     Route: 065
  7. VINCRISTINE [Suspect]
     Active Substance: VINCRISTINE
     Indication: Plasmablastic lymphoma
     Dosage: 0.3 MILLIGRAM/SQ. METER (RECEIVED DURING CYCLE 1)(THERAPY COMPLETED.)
     Route: 065
  8. VINCRISTINE [Suspect]
     Active Substance: VINCRISTINE
     Dosage: 0.2 MILLIGRAM/SQ. METER, (CYCLE 2) (RECEIVED DURING CYCLE 2 AND 4)
     Route: 065
  9. VINCRISTINE [Suspect]
     Active Substance: VINCRISTINE
     Dosage: 0.4 MILLIGRAM/SQ. METER (CYCLE 3 AND CYCLE 5 ) (RECEIVED DURING CYCLE 3,5 AND 6) (
     Route: 065
  10. DARATUMUMAB [Suspect]
     Active Substance: DARATUMUMAB
     Indication: Plasmablastic lymphoma
     Dosage: 16 MILLIGRAM/KILOGRAM, CYCLICAL (RECEIVED ON DAY 1, 8 AND 15 DURING CYCLE 1, RECEIVED ON DAY 1 AND D
     Route: 065

REACTIONS (8)
  - Neuropathy peripheral [Unknown]
  - Anaemia [Unknown]
  - HIV infection [Unknown]
  - Clostridium difficile infection [Unknown]
  - Norovirus infection [Unknown]
  - Epstein-Barr virus infection [Unknown]
  - Condition aggravated [Unknown]
  - Off label use [Unknown]
